FAERS Safety Report 9688388 (Version 1)
Quarter: 2013Q4

REPORT INFORMATION
  Report Type: Spontaneous
  Country: CH (occurrence: CH)
  Receive Date: 20131114
  Receipt Date: 20131114
  Transmission Date: 20140711
  Serious: Yes (Other)
  Sender: FDA-Public Use
  Company Number: CH-UCBSA-102887

PATIENT
  Age: 51 Year
  Sex: Female

DRUGS (3)
  1. VIMPAT [Suspect]
     Indication: EPILEPSY
     Dosage: DOSE: 300 MG PER DAY
     Dates: end: 2013
  2. PHENYTOIN [Concomitant]
  3. LAMICTAL [Concomitant]

REACTIONS (2)
  - Bradycardia [Recovered/Resolved]
  - Dizziness [Unknown]
